FAERS Safety Report 6813118-0 (Version None)
Quarter: 2010Q3

REPORT INFORMATION
  Report Type: 
  Country: None (occurrence: None)
  Receive Date: 20100701
  Receipt Date: 20100625
  Transmission Date: 20110219
  Serious: Yes (Hospitalization)
  Sender: FDA-Public Use
  Company Number: FR-SANOFI-AVENTIS-2010SA032369

PATIENT
  Age: 60 Year
  Sex: Male
  Weight: 84 kg

DRUGS (10)
  1. APIDRA [Suspect]
     Indication: TYPE 2 DIABETES MELLITUS
     Route: 058
     Dates: start: 20100402, end: 20100406
  2. LANTUS [Concomitant]
     Indication: TYPE 2 DIABETES MELLITUS
     Route: 058
     Dates: end: 20100406
  3. GLYBURIDE [Concomitant]
     Indication: TYPE 2 DIABETES MELLITUS
     Route: 048
  4. SECTRAL [Concomitant]
     Route: 048
  5. GLUCOPHAGE [Concomitant]
     Indication: TYPE 2 DIABETES MELLITUS
     Route: 048
  6. PRETERAX [Concomitant]
     Route: 048
  7. INIPOMP [Concomitant]
     Route: 048
  8. TAHOR [Concomitant]
     Route: 048
     Dates: start: 20100401
  9. BROMAZEPAM [Concomitant]
     Route: 048
  10. RIVOTRIL [Concomitant]
     Route: 048

REACTIONS (6)
  - DIZZINESS [None]
  - HEADACHE [None]
  - NAUSEA [None]
  - NOCTURIA [None]
  - TINNITUS [None]
  - VISUAL IMPAIRMENT [None]
